FAERS Safety Report 17433652 (Version 2)
Quarter: 2020Q1

REPORT INFORMATION
  Report Type: Spontaneous
  Country: US (occurrence: US)
  Receive Date: 20200219
  Receipt Date: 20200228
  Transmission Date: 20200409
  Serious: Yes (Other)
  Sender: FDA-Public Use
  Company Number: US-ASTRAZENECA-2019SE11518

PATIENT
  Age: 16743 Day
  Sex: Female

DRUGS (34)
  1. PRILOSEC OTC [Suspect]
     Active Substance: OMEPRAZOLE MAGNESIUM
     Route: 048
     Dates: start: 20080926
  2. ATENOLOL. [Concomitant]
     Active Substance: ATENOLOL
  3. AZITHROMYCIN ANHYDROUS. [Concomitant]
     Active Substance: AZITHROMYCIN ANHYDROUS
  4. OXYCONTIN [Concomitant]
     Active Substance: OXYCODONE HYDROCHLORIDE
  5. CEPHALEXIN. [Concomitant]
     Active Substance: CEPHALEXIN
  6. SENSIPAR [Concomitant]
     Active Substance: CINACALCET HYDROCHLORIDE
  7. PRILOSEC OTC [Suspect]
     Active Substance: OMEPRAZOLE MAGNESIUM
     Route: 048
     Dates: start: 2009
  8. METOPROLOL. [Concomitant]
     Active Substance: METOPROLOL
  9. TIMOLOL. [Concomitant]
     Active Substance: TIMOLOL
  10. AMLODIPINE BESYLATE. [Concomitant]
     Active Substance: AMLODIPINE BESYLATE
  11. ALPRAZOLAM. [Concomitant]
     Active Substance: ALPRAZOLAM
  12. NEXIUM [Suspect]
     Active Substance: ESOMEPRAZOLE MAGNESIUM
     Route: 048
     Dates: start: 2008
  13. TEMAZEPAM. [Concomitant]
     Active Substance: TEMAZEPAM
  14. COREG [Concomitant]
     Active Substance: CARVEDILOL
  15. NEXIUM [Suspect]
     Active Substance: ESOMEPRAZOLE MAGNESIUM
     Route: 048
     Dates: start: 2009
  16. SIMVASTATIN. [Concomitant]
     Active Substance: SIMVASTATIN
  17. NAPROXEN. [Concomitant]
     Active Substance: NAPROXEN
  18. KETOROLAC [Concomitant]
     Active Substance: KETOROLAC TROMETHAMINE
  19. ARANESP [Concomitant]
     Active Substance: DARBEPOETIN ALFA
  20. PRILOSEC OTC [Suspect]
     Active Substance: OMEPRAZOLE MAGNESIUM
     Route: 048
     Dates: start: 2008
  21. TRUSOPT [Concomitant]
     Active Substance: DORZOLAMIDE HYDROCHLORIDE
  22. HYDROCHLOROTHIAZIDE. [Concomitant]
     Active Substance: HYDROCHLOROTHIAZIDE
  23. CALCITRIOL. [Concomitant]
     Active Substance: CALCITRIOL
  24. NEXIUM [Suspect]
     Active Substance: ESOMEPRAZOLE MAGNESIUM
     Route: 048
     Dates: start: 20100802
  25. NOVOLOG [Concomitant]
     Active Substance: INSULIN ASPART
  26. SYMBICORT [Concomitant]
     Active Substance: BUDESONIDE\FORMOTEROL FUMARATE DIHYDRATE
  27. DORZOLAMIDE [Concomitant]
     Active Substance: DORZOLAMIDE
  28. ENDOCET [Concomitant]
     Active Substance: ACETAMINOPHEN\OXYCODONE HYDROCHLORIDE
  29. ZALEPLON. [Concomitant]
     Active Substance: ZALEPLON
  30. METOCLOPRAMIDE. [Concomitant]
     Active Substance: METOCLOPRAMIDE
  31. ZETIA [Concomitant]
     Active Substance: EZETIMIBE
  32. NOVOLIN N [Concomitant]
     Active Substance: INSULIN HUMAN
  33. BUPROPION. [Concomitant]
     Active Substance: BUPROPION
  34. VYTORIN [Concomitant]
     Active Substance: EZETIMIBE\SIMVASTATIN

REACTIONS (4)
  - Rebound acid hypersecretion [Unknown]
  - End stage renal disease [Unknown]
  - Renal failure [Unknown]
  - Chronic kidney disease [Unknown]

NARRATIVE: CASE EVENT DATE: 20190515
